FAERS Safety Report 15552973 (Version 1)
Quarter: 2018Q4

REPORT INFORMATION
  Report Type: Spontaneous
  Country: CA (occurrence: CA)
  Receive Date: 20181025
  Receipt Date: 20181025
  Transmission Date: 20190205
  Serious: Yes (Other)
  Sender: FDA-Public Use
  Company Number: CA-TEVA-2018-CA-966924

PATIENT
  Sex: Female

DRUGS (3)
  1. FENTANYL TRANSDERMAL SYSTEM [Concomitant]
     Active Substance: FENTANYL
  2. OXYCODONE [Concomitant]
     Active Substance: OXYCODONE
  3. SALBUTAMOL [Suspect]
     Active Substance: ALBUTEROL
     Indication: WHEEZING
     Route: 055

REACTIONS (3)
  - Productive cough [Unknown]
  - Pulmonary congestion [Unknown]
  - Respiratory tract irritation [Unknown]
